FAERS Safety Report 8256472 (Version 4)
Quarter: 2013Q1

REPORT INFORMATION
  Report Type: Report from Study
  Country: DE (occurrence: DE)
  Receive Date: 20111121
  Receipt Date: 20130319
  Transmission Date: 20140127
  Serious: Yes (Hospitalization)
  Sender: FDA-Public Use
  Company Number: DE-MILLENNIUM PHARMACEUTICALS, INC.-2011-05720

PATIENT
  Sex: 0

DRUGS (4)
  1. VELCADE [Suspect]
     Indication: PLASMA CELL MYELOMA
     Dosage: 2.7 MG, UNK
     Route: 042
     Dates: start: 20110726, end: 20111028
  2. VELCADE [Suspect]
     Dosage: 2.6 MG, UNK
     Route: 042
     Dates: start: 20111028, end: 20120824
  3. DEXAMETHASONE [Suspect]
     Indication: PRODUCT USED FOR UNKNOWN INDICATION
     Dosage: 20 MG, UNK
     Route: 048
     Dates: start: 20110726
  4. ADRIAMYCIN                         /00330901/ [Concomitant]
     Dosage: 18.8 MG, UNK
     Route: 042
     Dates: start: 20110726

REACTIONS (3)
  - Partial seizures [Recovered/Resolved]
  - Myopathy [Recovered/Resolved]
  - General physical health deterioration [Recovered/Resolved]
